FAERS Safety Report 9115572 (Version 2)
Quarter: 2013Q2

REPORT INFORMATION
  Report Type: Spontaneous
  Country: US (occurrence: US)
  Receive Date: 20130225
  Receipt Date: 20130418
  Transmission Date: 20140414
  Serious: No
  Sender: FDA-Public Use
  Company Number: US-PFIZER INC-2013065592

PATIENT
  Age: 28 Year
  Sex: Male
  Weight: 78.01 kg

DRUGS (2)
  1. ADVIL CONGESTION RELIEF [Suspect]
     Indication: NASOPHARYNGITIS
     Dosage: UNK
     Route: 048
     Dates: start: 20130215, end: 20130219
  2. ADVIL CONGESTION RELIEF [Suspect]
     Indication: HEADACHE

REACTIONS (5)
  - Rash [Not Recovered/Not Resolved]
  - Abdominal discomfort [Not Recovered/Not Resolved]
  - Throat irritation [Not Recovered/Not Resolved]
  - Pain [Unknown]
  - Insomnia [Unknown]
